FAERS Safety Report 20153139 (Version 1)
Quarter: 2021Q4

REPORT INFORMATION
  Report Type: Spontaneous
  Country: US (occurrence: US)
  Receive Date: 20211206
  Receipt Date: 20211206
  Transmission Date: 20220304
  Serious: Yes (Hospitalization)
  Sender: FDA-Public Use
  Company Number: US-MALLINCKRODT-T202105374

PATIENT
  Age: 6 Month
  Sex: Male

DRUGS (5)
  1. H.P. ACTHAR [Suspect]
     Active Substance: CORTICOTROPIN
     Indication: Infantile spasms
     Dosage: DAYS 1-14: INJECT 0.3ML TWICE A DAY
     Route: 030
     Dates: start: 202111, end: 202111
  2. H.P. ACTHAR [Suspect]
     Active Substance: CORTICOTROPIN
     Dosage: DAYS 15-17: 0.12ML EVERY MORNING
     Route: 030
     Dates: start: 202111, end: 202111
  3. H.P. ACTHAR [Suspect]
     Active Substance: CORTICOTROPIN
     Dosage: DAYS 18-20: 0.06ML EVERY MORNING
     Route: 030
     Dates: start: 202111, end: 202111
  4. H.P. ACTHAR [Suspect]
     Active Substance: CORTICOTROPIN
     Dosage: DAYS 21-23: 0.04ML EVERY MORNING
     Route: 030
     Dates: start: 202111, end: 202111
  5. H.P. ACTHAR [Suspect]
     Active Substance: CORTICOTROPIN
     Dosage: DAYS 24-28: 0.04ML EVERY OTHER MORNING 3 DOSES
     Route: 030
     Dates: start: 202111

REACTIONS (1)
  - Hospitalisation [Unknown]

NARRATIVE: CASE EVENT DATE: 20211113
